FAERS Safety Report 8778147 (Version 2)
Quarter: 2012Q4

REPORT INFORMATION
  Report Type: 
  Country: US (occurrence: US)
  Receive Date: 20120912
  Receipt Date: 20121226
  Transmission Date: 20130627
  Serious: Yes (Life-Threatening)
  Sender: FDA-Public Use
  Company Number: US-ASTRAZENECA-2012SE65956

PATIENT
  Age: 54 Year
  Sex: Female
  Weight: 70.3 kg

DRUGS (12)
  1. NEXIUM [Suspect]
     Route: 048
  2. OMEPRAZOLE [Suspect]
     Indication: DYSPEPSIA
     Route: 048
     Dates: start: 2007
  3. OMEPRAZOLE [Suspect]
     Indication: GASTROOESOPHAGEAL REFLUX DISEASE
     Route: 048
     Dates: start: 2007
  4. SEROQUEL [Suspect]
     Indication: INSOMNIA
     Route: 048
     Dates: start: 2011
  5. SEROQUEL [Suspect]
     Indication: INSOMNIA
     Route: 048
  6. SEROQUEL [Suspect]
     Indication: INSOMNIA
     Route: 048
  7. IMIPRAMINE [Concomitant]
     Indication: HEADACHE
     Route: 048
     Dates: start: 2006
  8. IMIPRAMINE [Concomitant]
     Indication: HEADACHE
     Route: 048
  9. GABAPENTIN [Concomitant]
     Indication: HEADACHE
     Route: 048
     Dates: start: 2007
  10. HYDROCHLOROTHIAZIDE/ HCT2 [Concomitant]
     Indication: HYPERTENSION
     Route: 048
     Dates: start: 201201
  11. AMLODIPINE/ NORVASC [Concomitant]
     Indication: HYPERTENSION
     Route: 048
     Dates: start: 201201
  12. LORTAB [Concomitant]
     Indication: HEADACHE
     Route: 048
     Dates: start: 2008

REACTIONS (15)
  - Suicide attempt [Unknown]
  - Gastrooesophageal reflux disease [Unknown]
  - Feeling abnormal [Unknown]
  - Crying [Unknown]
  - Aggression [Unknown]
  - Influenza [Unknown]
  - Fall [Unknown]
  - Weight increased [Unknown]
  - Psychomotor hyperactivity [Unknown]
  - Vomiting [Unknown]
  - Dyspepsia [Unknown]
  - Intentional drug misuse [Unknown]
  - Off label use [Unknown]
  - Drug dose omission [Unknown]
  - Drug ineffective [Unknown]
